FAERS Safety Report 8722812 (Version 4)
Quarter: 2012Q4

REPORT INFORMATION
  Report Type: Report from Study
  Country: US (occurrence: US)
  Receive Date: 20120814
  Receipt Date: 20120925
  Transmission Date: 20130627
  Serious: Yes (Hospitalization)
  Sender: FDA-Public Use
  Company Number: US-JNJFOC-20120804384

PATIENT
  Age: 16 Year
  Sex: Male
  Weight: 50.8 kg

DRUGS (5)
  1. REMICADE [Suspect]
     Indication: INFLAMMATORY BOWEL DISEASE
     Route: 042
     Dates: start: 20070804
  2. AZATHIOPRINE [Concomitant]
  3. CYPROHEPTADINE [Concomitant]
  4. IRON [Concomitant]
  5. CALCIUM [Concomitant]

REACTIONS (1)
  - Gastroenteritis viral [Recovered/Resolved]
